FAERS Safety Report 5601184-X (Version None)
Quarter: 2008Q1

REPORT INFORMATION
  Report Type: 
  Country: None (occurrence: None)
  Receive Date: 20080108
  Receipt Date: 20070730
  Transmission Date: 20080703
  Serious: Yes (Hospitalization)
  Sender: FDA-Public Use
  Company Number: PERC20070039

PATIENT
  Age: 62 Year
  Sex: Male

DRUGS (3)
  1. PERCOCET [Suspect]
     Indication: BACK PAIN
     Dosage: 1 TAB DAILY, PER ORAL
     Route: 048
  2. OXYCONTIN [Suspect]
     Indication: BACK PAIN
     Dosage: 10 MG, DAILY, PER ORAL
     Route: 048
  3. BIBR 1048 (DABIGATRAN ETEXILATE) - BLINDED [Concomitant]

REACTIONS (1)
  - MENTAL STATUS CHANGES [None]
